FAERS Safety Report 24285648 (Version 2)
Quarter: 2024Q3

REPORT INFORMATION
  Report Type: Spontaneous
  Country: BE (occurrence: BE)
  Receive Date: 20240905
  Receipt Date: 20240927
  Transmission Date: 20241017
  Serious: Yes (Hospitalization)
  Sender: AUROBINDO
  Company Number: BE-AUROBINDO-AUR-APL-2024-043649

PATIENT
  Age: 71 Year
  Sex: Male
  Weight: 82.4 kg

DRUGS (10)
  1. DOCETAXEL [Suspect]
     Active Substance: DOCETAXEL\DOCETAXEL ANHYDROUS
     Indication: Non-small cell lung cancer metastatic
     Dosage: 75 MILLIGRAM/SQ. METER, CYCLICAL (75 MG/M2, ON DAY 1 OF A 21-DAY CYCLE (Q3W))
     Route: 042
     Dates: start: 20240724, end: 20240724
  2. NEUROBION [Concomitant]
     Active Substance: CYANOCOBALAMIN\PYRIDOXINE\THIAMINE
     Indication: Prophylaxis
     Dosage: UNK
     Route: 030
     Dates: start: 20231229
  3. FOLIC ACID [Concomitant]
     Active Substance: FOLIC ACID
     Indication: Folate deficiency
     Dosage: UNK
     Route: 048
     Dates: start: 20231201
  4. EDOXABAN TOSYLATE [Concomitant]
     Active Substance: EDOXABAN TOSYLATE
     Indication: Deep vein thrombosis
     Dosage: UNK
     Route: 048
     Dates: start: 20240202, end: 20240731
  5. Pantomed [Concomitant]
     Indication: Gastrooesophageal reflux disease
     Dosage: UNK
     Route: 048
     Dates: start: 20231130
  6. BISOPROLOL [Concomitant]
     Active Substance: BISOPROLOL\BISOPROLOL FUMARATE
     Indication: Atrial flutter
     Dosage: UNK
     Route: 048
     Dates: start: 20240521
  7. ACETYLCYSTEINE [Concomitant]
     Active Substance: ACETYLCYSTEINE
     Indication: Cough
     Dosage: UNK
     Route: 048
     Dates: start: 20231130
  8. SIMVASTATIN [Concomitant]
     Active Substance: SIMVASTATIN
     Indication: Hypercholesterolaemia
     Dosage: UNK
     Route: 048
     Dates: start: 20231123
  9. D VITAL FORTE [Concomitant]
     Indication: Metastases to bone
     Dosage: UNK
     Route: 048
     Dates: start: 20231226
  10. CALCIUM CARBONATE\CHOLECALCIFEROL [Concomitant]
     Active Substance: CALCIUM CARBONATE\CHOLECALCIFEROL
     Indication: Metastases to bone
     Dosage: UNK
     Route: 048
     Dates: start: 20231226

REACTIONS (2)
  - Confusional state [Unknown]
  - Bronchitis [Recovered/Resolved]

NARRATIVE: CASE EVENT DATE: 20240727
